FAERS Safety Report 6198335-8 (Version None)
Quarter: 2009Q2

REPORT INFORMATION
  Report Type: 
  Country: None (occurrence: None)
  Receive Date: 20090521
  Receipt Date: 20090508
  Transmission Date: 20091009
  Serious: Yes (Hospitalization)
  Sender: FDA-Public Use
  Company Number: FR-ROCHE-632457

PATIENT

DRUGS (2)
  1. RIBAVIRIN [Suspect]
     Route: 065
  2. DARBEPOETIN ALFA [Suspect]
     Route: 058

REACTIONS (1)
  - COLON CANCER [None]
